FAERS Safety Report 11394016 (Version 1)
Quarter: 2015Q3

REPORT INFORMATION
  Report Type: Report from Study
  Country: US (occurrence: US)
  Receive Date: 20150819
  Receipt Date: 20150819
  Transmission Date: 20151125
  Serious: Yes (Other)
  Sender: FDA-Public Use
  Company Number: US-AMGEN-USASL2015083033

PATIENT
  Age: 53 Year
  Sex: Male

DRUGS (1)
  1. ENBREL [Suspect]
     Active Substance: ETANERCEPT
     Indication: PSORIASIS
     Dosage: 50 MG, TWICE WEEKLY
     Route: 065
     Dates: end: 2013

REACTIONS (7)
  - Alcoholic [Unknown]
  - Rotator cuff syndrome [Not Recovered/Not Resolved]
  - Pain [Not Recovered/Not Resolved]
  - Intervertebral disc disorder [Not Recovered/Not Resolved]
  - Hypertension [Not Recovered/Not Resolved]
  - Psoriasis [Not Recovered/Not Resolved]
  - Alopecia [Not Recovered/Not Resolved]
